FAERS Safety Report 9168797 (Version 1)
Quarter: 2013Q1

REPORT INFORMATION
  Report Type: Spontaneous
  Country: US (occurrence: None)
  Receive Date: 20130314
  Receipt Date: 20130314
  Transmission Date: 20140127
  Serious: Yes (Life-Threatening, Hospitalization)
  Sender: FDA-Public Use
  Company Number: None

PATIENT
  Age: 22 Year
  Sex: Male
  Weight: 55.9 kg

DRUGS (1)
  1. FENTANYL [Suspect]
     Route: 042
     Dates: start: 20130310, end: 20130311

REACTIONS (6)
  - Hyperthermia [None]
  - Mental status changes [None]
  - Hypoglycaemia [None]
  - Unresponsive to stimuli [None]
  - Cardio-respiratory arrest [None]
  - Pulseless electrical activity [None]
